FAERS Safety Report 10526999 (Version 1)
Quarter: 2014Q4

REPORT INFORMATION
  Report Type: Spontaneous
  Country: US (occurrence: None)
  Receive Date: 20141016
  Receipt Date: 20141016
  Transmission Date: 20150528
  Serious: Yes (Other)
  Sender: FDA-Public Use
  Company Number: 001814620A

PATIENT
  Age: 13 Year
  Sex: Male

DRUGS (5)
  1. PROACTIV SKIN LIGHTENING [Suspect]
     Active Substance: HYDROQUINONE
     Indication: ACNE
     Dosage: BID DERMAL
     Dates: start: 20140820, end: 20140830
  2. PROACTIVPLUS SKIN SMOOTHING EXFOLIATOR [Suspect]
     Active Substance: BENZOYL PEROXIDE
     Indication: ACNE
     Dosage: BID DERMAL
     Route: 061
     Dates: start: 20140820, end: 20140830
  3. PROACTIV DEEP CLEANSING WASH [Suspect]
     Active Substance: SALICYLIC ACID
     Indication: ACNE
     Dosage: BID DERMAL
     Dates: start: 20140820, end: 20140830
  4. PROACTIV PLUS PORE TARGETING TREATMENT [Suspect]
     Active Substance: BENZOYL PEROXIDE
     Indication: ACNE
     Dosage: BID DERMAL
     Dates: start: 20140820, end: 20140830
  5. PROACTIV PLUS COMPLEXION PERFECTING HYDRATOR [Suspect]
     Active Substance: SALICYLIC ACID
     Indication: ACNE
     Dates: start: 20140820, end: 20140830

REACTIONS (7)
  - Skin fissures [None]
  - Erythema [None]
  - Skin discolouration [None]
  - Skin haemorrhage [None]
  - Skin necrosis [None]
  - Skin irritation [None]
  - Scab [None]

NARRATIVE: CASE EVENT DATE: 20140830
